FAERS Safety Report 6692263-7 (Version None)
Quarter: 2010Q2

REPORT INFORMATION
  Report Type: 
  Country: None (occurrence: None)
  Receive Date: 20100415
  Receipt Date: 20100402
  Transmission Date: 20101027
  Serious: No
  Sender: FDA-Public Use
  Company Number: 2010-00360

PATIENT
  Age: 65 Year
  Sex: Female
  Weight: 63.5036 kg

DRUGS (4)
  1. ZICAM COLD REMEDY RAPIDMELTS [Suspect]
     Dosage: QID - 1 MONTH
     Dates: start: 20100330, end: 20100401
  2. METFORMIN HYDROCHLORIDE [Concomitant]
  3. ZIAC [Concomitant]
  4. ASPIRIN [Concomitant]

REACTIONS (1)
  - AGEUSIA [None]
